FAERS Safety Report 19168129 (Version 1)
Quarter: 2021Q2

REPORT INFORMATION
  Report Type: Spontaneous
  Country: US (occurrence: US)
  Receive Date: 20210422
  Receipt Date: 20210422
  Transmission Date: 20210717
  Serious: No
  Sender: FDA-Public Use
  Company Number: US-BAUSCH-BL-2021-010021

PATIENT
  Age: 56 Year
  Sex: Female

DRUGS (2)
  1. RENOVA [Suspect]
     Active Substance: TRETINOIN
     Indication: SKIN COSMETIC PROCEDURE
  2. RENOVA [Suspect]
     Active Substance: TRETINOIN
     Indication: ACNE
     Route: 061
     Dates: start: 2020, end: 202102

REACTIONS (4)
  - Product quality issue [Unknown]
  - Therapy interrupted [Unknown]
  - Acne [Not Recovered/Not Resolved]
  - Expired product administered [Unknown]

NARRATIVE: CASE EVENT DATE: 2020
